FAERS Safety Report 9476598 (Version 1)
Quarter: 2013Q3

REPORT INFORMATION
  Report Type: Spontaneous
  Country: US (occurrence: None)
  Receive Date: 20130823
  Receipt Date: 20130823
  Transmission Date: 20140515
  Serious: Yes (Other)
  Sender: FDA-Public Use
  Company Number: None

PATIENT
  Age: 84 Year
  Sex: Female
  Weight: 71.22 kg

DRUGS (1)
  1. ARICEPT [Suspect]
     Indication: DEMENTIA ALZHEIMER^S TYPE
     Dosage: RX:0049135 ONCE DAILY TAKEN BY MOUTH
     Route: 048
     Dates: start: 20120827, end: 20130821

REACTIONS (3)
  - Nightmare [None]
  - Muscle spasms [None]
  - Feeling abnormal [None]
